FAERS Safety Report 6073247-9 (Version None)
Quarter: 2009Q1

REPORT INFORMATION
  Report Type: 
  Country: None (occurrence: None)
  Receive Date: 20090211
  Receipt Date: 20081219
  Transmission Date: 20090719
  Serious: No
  Sender: FDA-Public Use
  Company Number: A0761095A

PATIENT
  Age: 19 Year
  Sex: Female

DRUGS (2)
  1. ALTABAX [Suspect]
     Indication: STAPHYLOCOCCAL INFECTION
     Dosage: 1APP TWICE PER DAY
     Route: 061
     Dates: start: 20081218
  2. SMZ-TMP DS [Concomitant]

REACTIONS (3)
  - FEELING ABNORMAL [None]
  - LIP PAIN [None]
  - PARAESTHESIA ORAL [None]
